FAERS Safety Report 7347768-2 (Version None)
Quarter: 2011Q1

REPORT INFORMATION
  Report Type: 
  Country: None (occurrence: None)
  Receive Date: 20110311
  Receipt Date: 20110308
  Transmission Date: 20110831
  Serious: Yes (Other)
  Sender: FDA-Public Use
  Company Number: US-PFIZER INC-2011050968

PATIENT
  Sex: Female
  Weight: 61.224 kg

DRUGS (1)
  1. ADVIL ALLERGY SINUS [Suspect]
     Indication: PAIN
     Dosage: 400 MG, AS NEEDED
     Route: 048
     Dates: start: 20100101, end: 20110308

REACTIONS (2)
  - EYE PRURITUS [None]
  - EYE SWELLING [None]
